FAERS Safety Report 4543084-2 (Version None)
Quarter: 2004Q4

REPORT INFORMATION
  Report Type: 
  Country: None (occurrence: None)
  Receive Date: 20041229
  Receipt Date: 20041213
  Transmission Date: 20050328
  Serious: Yes (Hospitalization, Disabling)
  Sender: FDA-Public Use
  Company Number: 2004-BP-11631NB

PATIENT
  Age: 67 Year
  Sex: Male

DRUGS (9)
  1. MEXITIL [Suspect]
     Indication: DIABETIC NEUROPATHY
     Dosage: 300 MG (100 MG) PO
     Route: 048
     Dates: start: 20030430, end: 20030602
  2. EUGLUCON (GLIBENCLAMIDE) [Concomitant]
  3. LIPOVAS (SIMVASTATIN) [Concomitant]
  4. JUVELA NICOTINATE (TOCOPHERYL NICOTINATE) [Concomitant]
  5. METHYCOBAL (MECOBALAMIN) [Concomitant]
  6. FAMOTIDINE [Concomitant]
  7. BUP-4 (PROPIVERINE  HYDROCHLORIDE) [Concomitant]
  8. POLLAKISU (OXYBUTYNIN HYDROCHLORIDE) [Concomitant]
  9. HARNAL (TAMSULOSIN HYDROCHLORIDE) [Concomitant]

REACTIONS (4)
  - DIALYSIS [None]
  - HYPERSENSITIVITY [None]
  - RENAL FAILURE ACUTE [None]
  - SKIN TEST POSITIVE [None]
